FAERS Safety Report 22004285 (Version 1)
Quarter: 2023Q1

REPORT INFORMATION
  Report Type: Spontaneous
  Country: FR (occurrence: FR)
  Receive Date: 20230217
  Receipt Date: 20230217
  Transmission Date: 20230418
  Serious: Yes (Hospitalization)
  Sender: FDA-Public Use
  Company Number: FR-PFIZER INC-PV202300020754

PATIENT
  Age: 70 Year
  Sex: Male

DRUGS (7)
  1. CARBOPLATIN [Suspect]
     Active Substance: CARBOPLATIN
     Indication: Penile squamous cell carcinoma
     Dosage: 315 MILLIGRAM, ONCE A DAY
     Route: 065
     Dates: start: 20201204
  2. PACLITAXEL [Suspect]
     Active Substance: PACLITAXEL
     Indication: Penile squamous cell carcinoma
     Dosage: 327 MG
     Route: 065
     Dates: start: 20201204
  3. AVELUMAB [Concomitant]
     Active Substance: AVELUMAB
     Indication: Penile squamous cell carcinoma
     Dosage: 710 MG
     Route: 065
     Dates: start: 20191128
  4. CANDESARTAN CILEXETIL [Concomitant]
     Active Substance: CANDESARTAN CILEXETIL
     Indication: Hypertension
     Dosage: 16 MILLIGRAM, ONCE A DAY
     Route: 048
     Dates: start: 2013
  5. LEVOTHYROXINE [Concomitant]
     Active Substance: LEVOTHYROXINE
     Indication: Hypothyroidism
     Dosage: 50 MICROGRAM, ONCE A DAY
     Route: 048
     Dates: start: 20200510
  6. PROPANOL (PROPRANOLOL HYDROCHLORIDE) [Concomitant]
     Active Substance: PROPRANOLOL HYDROCHLORIDE
     Indication: Hypertension
     Dosage: 40 MILLIGRAM, ONCE A DAY
     Route: 048
     Dates: start: 20200910
  7. XARELTO [Concomitant]
     Active Substance: RIVAROXABAN
     Indication: Anticoagulant therapy
     Dosage: 10 MILLIGRAM, ONCE A DAY
     Route: 048
     Dates: start: 20191227

REACTIONS (1)
  - General physical health deterioration [Recovered/Resolved]

NARRATIVE: CASE EVENT DATE: 20201213
